FAERS Safety Report 4566959-7 (Version None)
Quarter: 2005Q1

REPORT INFORMATION
  Report Type: 
  Country: None (occurrence: None)
  Receive Date: 20050126
  Receipt Date: 20050107
  Transmission Date: 20050727
  Serious: Yes (Hospitalization, Other)
  Sender: FDA-Public Use
  Company Number: USA020312659

PATIENT
  Age: 44 Year
  Sex: Female
  Weight: 55 kg

DRUGS (7)
  1. HUMULIN N [Suspect]
     Indication: DIABETES MELLITUS
     Dosage: 20 U
     Dates: start: 19840101, end: 20041101
  2. HUMULIN R [Suspect]
     Indication: DIABETES MELLITUS
     Dates: start: 19840101
  3. HUMALOG [Suspect]
     Indication: DIABETES MELLITUS
  4. ILETIN I [Suspect]
     Indication: DIABETES MELLITUS
  5. REGULAR ILETIN II (PORK) [Suspect]
     Indication: DIABETES MELLITUS
  6. NPH INSULIN, BEEF [Suspect]
     Indication: DIABETES MELLITUS
  7. LANTUS [Concomitant]

REACTIONS (6)
  - ABSCESS [None]
  - BLOOD GLUCOSE FLUCTUATION [None]
  - CEREBROVASCULAR ACCIDENT [None]
  - DIFFICULTY IN WALKING [None]
  - HYPERSENSITIVITY [None]
  - OEDEMA PERIPHERAL [None]
